FAERS Safety Report 7232771-3 (Version None)
Quarter: 2011Q1

REPORT INFORMATION
  Report Type: 
  Country: None (occurrence: None)
  Receive Date: 20110119
  Receipt Date: 20110105
  Transmission Date: 20110831
  Serious: Yes (Death)
  Sender: FDA-Public Use
  Company Number: JP-GENENTECH-312103

PATIENT
  Age: 70 Year
  Sex: Male

DRUGS (3)
  1. XOLAIR [Suspect]
     Dosage: UNK
     Route: 058
     Dates: start: 20101216
  2. STEROIDS (UNK INGREDIENTS) [Concomitant]
     Indication: CHRONIC OBSTRUCTIVE PULMONARY DISEASE
  3. XOLAIR [Suspect]
     Indication: ASTHMA
     Route: 058

REACTIONS (1)
  - RESPIRATORY FAILURE [None]
